FAERS Safety Report 7699342-6 (Version None)
Quarter: 2011Q3

REPORT INFORMATION
  Report Type: 
  Country: None (occurrence: None)
  Receive Date: 20110819
  Receipt Date: 20110809
  Transmission Date: 20111222
  Serious: Yes (Other)
  Sender: FDA-Public Use
  Company Number: US-BAYER-2011-014323

PATIENT
  Age: 27 Year
  Sex: Female
  Weight: 58.957 kg

DRUGS (4)
  1. YAZ [Suspect]
     Indication: PRODUCT USED FOR UNKNOWN INDICATION
     Dosage: UNK
     Dates: start: 20080801, end: 20081001
  2. XANAX [Concomitant]
     Indication: PANIC DISORDER
     Dosage: UNK
     Route: 048
     Dates: start: 20090101
  3. CELEXA [Concomitant]
     Indication: PANIC DISORDER
     Dosage: UNK
     Route: 048
     Dates: start: 20080101, end: 20100101
  4. PROZAC [Concomitant]
     Indication: PANIC DISORDER
     Dosage: UNK
     Dates: start: 20100101

REACTIONS (12)
  - CHEST PAIN [None]
  - WEIGHT DECREASED [None]
  - HYPOAESTHESIA [None]
  - EMOTIONAL DISTRESS [None]
  - PANIC ATTACK [None]
  - DEPRESSION [None]
  - HORMONE LEVEL ABNORMAL [None]
  - VAGINAL HAEMORRHAGE [None]
  - NAUSEA [None]
  - VISION BLURRED [None]
  - DYSPNOEA [None]
  - PAIN [None]
